FAERS Safety Report 16124161 (Version 1)
Quarter: 2019Q1

REPORT INFORMATION
  Report Type: Spontaneous
  Country: None (occurrence: US)
  Receive Date: 20190327
  Receipt Date: 20190327
  Transmission Date: 20190418
  Serious: No
  Sender: FDA-Public Use
  Company Number: US-AKRON, INC.-2064776

PATIENT
  Age: 67 Year
  Sex: Female

DRUGS (1)
  1. BENZTROPINE MESYLATE INJECTION [Suspect]
     Active Substance: BENZTROPINE MESYLATE
     Route: 030

REACTIONS (1)
  - Muscle spasms [Unknown]
